FAERS Safety Report 5312279-2 (Version None)
Quarter: 2007Q2

REPORT INFORMATION
  Report Type: 
  Country: None (occurrence: None)
  Receive Date: 20070430
  Receipt Date: 20070209
  Transmission Date: 20071010
  Serious: No
  Sender: FDA-Public Use
  Company Number: 2006UW19363

PATIENT
  Age: 89 Year
  Sex: Female
  Weight: 59.4 kg

DRUGS (13)
  1. NEXIUM [Suspect]
     Indication: GASTROOESOPHAGEAL REFLUX DISEASE
     Route: 048
  2. NEXIUM [Suspect]
     Indication: ABDOMINAL PAIN
     Route: 048
  3. SULFA [Concomitant]
     Route: 048
  4. VALIUM [Concomitant]
     Route: 048
  5. GLUCOSAMINE [Concomitant]
     Route: 048
  6. VITAMINS WITH MINERALS [Concomitant]
     Route: 048
  7. CALCIUM CHLORIDE [Concomitant]
  8. VITAMIN D [Concomitant]
  9. VITAMIN CAP [Concomitant]
  10. MSM [Concomitant]
  11. ASCORBIC ACID [Concomitant]
  12. ACIDOPHILUS [Concomitant]
  13. VITAMIN E [Concomitant]

REACTIONS (8)
  - ABDOMINAL DISTENSION [None]
  - DIARRHOEA [None]
  - FREQUENT BOWEL MOVEMENTS [None]
  - IRRITABLE BOWEL SYNDROME [None]
  - RASH MACULAR [None]
  - REFLUX OESOPHAGITIS [None]
  - SKIN EXFOLIATION [None]
  - VOMITING [None]
